FAERS Safety Report 8056529-0 (Version None)
Quarter: 2012Q1

REPORT INFORMATION
  Report Type: 
  Country: None (occurrence: None)
  Receive Date: 20120119
  Receipt Date: 20120111
  Transmission Date: 20120608
  Serious: Yes (Other)
  Sender: FDA-Public Use
  Company Number: JP-PFIZER INC-2011282990

PATIENT
  Age: 51 Year
  Sex: Male

DRUGS (13)
  1. ARGATROBAN [Suspect]
     Dosage: UNK
     Route: 041
     Dates: start: 20110724, end: 20110725
  2. ARGATROBAN [Suspect]
     Dosage: UNK
     Route: 041
     Dates: start: 20110727, end: 20110728
  3. ARGATROBAN [Suspect]
     Dosage: UNK
     Route: 041
     Dates: start: 20110729, end: 20110730
  4. WARFARIN SODIUM [Suspect]
     Indication: ANTICOAGULANT THERAPY
  5. ARGATROBAN [Suspect]
     Indication: HEPARIN-INDUCED THROMBOCYTOPENIA
     Dosage: UNK
     Route: 041
     Dates: start: 20110723, end: 20110724
  6. ARGATROBAN [Suspect]
     Dosage: UNK
     Route: 041
     Dates: start: 20110726, end: 20110727
  7. RIFAMPICIN [Suspect]
     Indication: ENDOCARDITIS
  8. LINEZOLID [Suspect]
     Indication: ENDOCARDITIS
  9. HEPARIN [Suspect]
     Indication: ANTICOAGULANT THERAPY
     Dosage: UNK
     Route: 041
     Dates: start: 20110716
  10. ARGATROBAN [Suspect]
     Dosage: UNK
     Route: 041
     Dates: start: 20110728, end: 20110729
  11. VANCOMYCIN [Suspect]
     Indication: ENDOCARDITIS
  12. ARGATROBAN [Suspect]
     Dosage: UNK
     Route: 041
     Dates: start: 20110725, end: 20110726
  13. ARBEKACIN SULFATE [Suspect]
     Indication: ENDOCARDITIS

REACTIONS (3)
  - EOSINOPHIL COUNT INCREASED [None]
  - PYREXIA [None]
  - HEPATIC FUNCTION ABNORMAL [None]
